FAERS Safety Report 8308878-6 (Version None)
Quarter: 2012Q2

REPORT INFORMATION
  Report Type: 
  Country: None (occurrence: None)
  Receive Date: 20120424
  Receipt Date: 20110421
  Transmission Date: 20120825
  Serious: Yes (Other)
  Sender: FDA-Public Use
  Company Number: US-TEVA-2011001995

PATIENT
  Sex: Female

DRUGS (3)
  1. PROVIGIL [Suspect]
     Indication: NARCOLEPSY
     Dosage: 200 MILLIGRAM;
     Route: 048
     Dates: start: 19991101, end: 20110419
  2. MULTI-VITAMINS [Concomitant]
     Dates: start: 20110301
  3. ALLEGRA-D 12 HOUR [Concomitant]
     Dates: start: 20050101

REACTIONS (3)
  - MATERNAL EXPOSURE DURING PREGNANCY [None]
  - NAUSEA [None]
  - FLATULENCE [None]
